FAERS Safety Report 9768938 (Version 1)
Quarter: 2013Q4

REPORT INFORMATION
  Report Type: Spontaneous
  Country: FR (occurrence: None)
  Receive Date: 20131216
  Receipt Date: 20131216
  Transmission Date: 20140711
  Serious: Yes (Hospitalization)
  Sender: FDA-Public Use
  Company Number: 152260

PATIENT
  Age: 26 Year
  Sex: Male

DRUGS (1)
  1. BUPRENORPHINE HCL [Suspect]
     Route: 042

REACTIONS (6)
  - Peripheral ischaemia [None]
  - Urinary retention [None]
  - Incorrect route of drug administration [None]
  - Skin exfoliation [None]
  - Enterobacter test positive [None]
  - Urethritis [None]
